FAERS Safety Report 15655322 (Version 2)
Quarter: 2019Q1

REPORT INFORMATION
  Report Type: Spontaneous
  Country: US (occurrence: US)
  Receive Date: 20181126
  Receipt Date: 20190119
  Transmission Date: 20190417
  Serious: Yes (Hospitalization)
  Sender: FDA-Public Use
  Company Number: US-IPSEN BIOPHARMACEUTICALS, INC.-2018-17683

PATIENT
  Sex: Male

DRUGS (2)
  1. SOMATULINE DEPOT [Suspect]
     Active Substance: LANREOTIDE ACETATE
     Indication: HAEMORRHAGIC ANAEMIA
     Dosage: SITE: LEFT UPPER OUTER BUTTOCK EACH TIME.
     Route: 058
     Dates: start: 20181015
  2. SOMATULINE DEPOT [Suspect]
     Active Substance: LANREOTIDE ACETATE
     Indication: OFF LABEL USE

REACTIONS (3)
  - Off label use [Unknown]
  - Gastrointestinal haemorrhage [Recovered/Resolved]
  - Anaemia [Unknown]
